FAERS Safety Report 15575009 (Version 1)
Quarter: 2018Q4

REPORT INFORMATION
  Report Type: Spontaneous
  Country: US (occurrence: US)
  Receive Date: 20181101
  Receipt Date: 20181101
  Transmission Date: 20190205
  Serious: Yes (Disabling)
  Sender: FDA-Public Use
  Company Number: None

PATIENT
  Age: 54 Year
  Sex: Female
  Weight: 74.25 kg

DRUGS (5)
  1. FLAXSEED [Concomitant]
     Active Substance: FLAX SEED
  2. DULOXETINE 30 MG GENERIC FOR CYMBALTA [Suspect]
     Active Substance: DULOXETINE
     Indication: DEPRESSION
     Dosage: ?          QUANTITY:3 TABLET(S);?
     Route: 048
     Dates: start: 20180623, end: 20181031
  3. ESCITALOPRAM [Concomitant]
     Active Substance: ESCITALOPRAM OXALATE
  4. DULOXETINE 30 MG GENERIC FOR CYMBALTA [Suspect]
     Active Substance: DULOXETINE
     Indication: FIBROMYALGIA
     Dosage: ?          QUANTITY:3 TABLET(S);?
     Route: 048
     Dates: start: 20180623, end: 20181031
  5. LOSARTIN/HCT [Concomitant]

REACTIONS (4)
  - Glomerular filtration rate increased [None]
  - Liver injury [None]
  - Glycosylated haemoglobin increased [None]
  - Blood glucose increased [None]

NARRATIVE: CASE EVENT DATE: 20180823
